FAERS Safety Report 4570458-6 (Version None)
Quarter: 2005Q1

REPORT INFORMATION
  Report Type: 
  Country: None (occurrence: None)
  Receive Date: 20050204
  Receipt Date: 20050126
  Transmission Date: 20050727
  Serious: Yes (Hospitalization)
  Sender: FDA-Public Use
  Company Number: JP-JNJFOC-20050105407

PATIENT
  Age: 24 Year
  Sex: Female

DRUGS (1)
  1. RISPERDAL [Suspect]
     Indication: SCHIZOPHRENIA
     Dosage: PT. TOOK 40 TABLETS (STRENGTH UNSPECIFIED) IN A SUICIDE ATTEMPT.   PRESCRIBED DOSAGE UNSPECIFIED.

REACTIONS (4)
  - EXTRAPYRAMIDAL DISORDER [None]
  - FALL [None]
  - OVERDOSE [None]
  - SUICIDE ATTEMPT [None]
